FAERS Safety Report 6706701-4 (Version None)
Quarter: 2010Q2

REPORT INFORMATION
  Report Type: 
  Country: None (occurrence: None)
  Receive Date: 20100503
  Receipt Date: 20100421
  Transmission Date: 20101027
  Serious: Yes (Hospitalization, Other)
  Sender: FDA-Public Use
  Company Number: US-ELI_LILLY_AND_COMPANY-US200912004657

PATIENT
  Sex: Female

DRUGS (12)
  1. FORTEO [Suspect]
     Indication: OSTEOPOROSIS
     Dosage: 20 UG, DAILY (1/D)
     Dates: start: 20091201
  2. FORTEO [Suspect]
     Dosage: 20 UG, DAILY (1/D)
  3. NORVASC [Concomitant]
     Dosage: 5 MG, DAILY (1/D)
  4. K-DUR [Concomitant]
     Dosage: 20 MG, DAILY (1/D)
  5. ATIVAN [Concomitant]
     Dosage: 1 MG, 2/D
  6. ATIVAN [Concomitant]
     Dosage: 2 MG, AS NEEDED
  7. ASPIRIN LOW [Concomitant]
     Dosage: 81 MG, OTHER
  8. TYLENOL                                 /SCH/ [Concomitant]
     Dosage: 500 MG, AS NEEDED
  9. COLACE [Concomitant]
     Dosage: 100 MG, DAILY (1/D)
  10. NEXIUM [Concomitant]
     Dosage: 40 MG, DAILY (1/D)
  11. AMBIEN [Concomitant]
     Dosage: 5 MG, EACH EVENING
  12. CELEXA [Concomitant]
     Dosage: 10 MG, DAILY (1/D)

REACTIONS (19)
  - ARTHRALGIA [None]
  - ARTHROPATHY [None]
  - ASTHENIA [None]
  - DECREASED APPETITE [None]
  - DIARRHOEA [None]
  - HEADACHE [None]
  - HYPERSENSITIVITY [None]
  - JOINT SWELLING [None]
  - LUNG NEOPLASM [None]
  - OEDEMA PERIPHERAL [None]
  - PAIN IN EXTREMITY [None]
  - PNEUMONIA [None]
  - POOR PERIPHERAL CIRCULATION [None]
  - SINUS DISORDER [None]
  - SINUSITIS [None]
  - SKIN DISORDER [None]
  - TINNITUS [None]
  - WEIGHT DECREASED [None]
  - WEIGHT INCREASED [None]
